FAERS Safety Report 5982180-X (Version None)
Quarter: 2008Q4

REPORT INFORMATION
  Report Type: 
  Country: None (occurrence: None)
  Receive Date: 20081208
  Receipt Date: 20081202
  Transmission Date: 20090506
  Serious: Yes (Hospitalization)
  Sender: FDA-Public Use
  Company Number: A0752538A

PATIENT
  Age: 71 Year
  Sex: Female

DRUGS (13)
  1. ADVAIR HFA [Suspect]
     Indication: ASTHMA
     Route: 055
  2. ASPIRIN [Concomitant]
  3. IMDUR [Concomitant]
  4. LASIX [Concomitant]
  5. LISINOPRIL [Concomitant]
  6. SINGULAIR [Concomitant]
  7. LOPRESSOR [Concomitant]
  8. KLOR-CON [Concomitant]
  9. ZOCOR [Concomitant]
  10. ZOLOFT [Concomitant]
  11. SYNTHROID [Concomitant]
  12. NITROGLYCERIN [Concomitant]
     Route: 060
  13. PLAVIX [Concomitant]

REACTIONS (7)
  - ASTHENIA [None]
  - DRUG INEFFECTIVE [None]
  - DYSPNOEA [None]
  - HAEMATOCHEZIA [None]
  - LARGE INTESTINAL HAEMORRHAGE [None]
  - PRODUCT QUALITY ISSUE [None]
  - VASCULAR INJURY [None]
